FAERS Safety Report 5478310-9 (Version None)
Quarter: 2007Q4

REPORT INFORMATION
  Report Type: 
  Country: None (occurrence: None)
  Receive Date: 20071005
  Receipt Date: 20070926
  Transmission Date: 20080405
  Serious: Yes (Other)
  Sender: FDA-Public Use
  Company Number: FR-JNJFOC-20071000194

PATIENT
  Sex: Female

DRUGS (2)
  1. PREZISTA [Suspect]
     Indication: HIV INFECTION
     Dosage: THERAPY ONGOING FOR APPROXIMATELY 2 MONTHS
     Route: 048
  2. TRUVADA [Suspect]
     Indication: HIV INFECTION
     Dosage: THERAPY ONGOING FOR APPROXIMATELY 2 MONTHS
     Route: 048

REACTIONS (1)
  - FACIAL PALSY [None]
